FAERS Safety Report 16530303 (Version 1)
Quarter: 2019Q3

REPORT INFORMATION
  Report Type: Spontaneous
  Country: US (occurrence: US)
  Receive Date: 20190704
  Receipt Date: 20190704
  Transmission Date: 20191004
  Serious: No
  Sender: FDA-Public Use
  Company Number: US-TEVA-2019-US-1063315

PATIENT

DRUGS (1)
  1. CLONAZEPAM ACTAVIS [Suspect]
     Active Substance: CLONAZEPAM
     Indication: SLEEP DISORDER
     Route: 065

REACTIONS (5)
  - Insomnia [Unknown]
  - Reaction to excipient [Unknown]
  - Irritability [Unknown]
  - Hypersensitivity [Unknown]
  - Product substitution issue [Unknown]
